FAERS Safety Report 5201035-1 (Version None)
Quarter: 2007Q1

REPORT INFORMATION
  Report Type: 
  Country: None (occurrence: None)
  Receive Date: 20070103
  Receipt Date: 20061221
  Transmission Date: 20070707
  Serious: Yes (Hospitalization)
  Sender: FDA-Public Use
  Company Number: B0451492A

PATIENT
  Age: 35 Year
  Sex: Male

DRUGS (4)
  1. EPIVIR [Suspect]
     Indication: ACQUIRED IMMUNODEFICIENCY SYNDROME
     Dates: start: 20040313
  2. TENOFOVIR (TENOFOVIR) [Suspect]
     Indication: ACQUIRED IMMUNODEFICIENCY SYNDROME
     Dates: start: 20040313
  3. KALETRA [Suspect]
     Indication: ACQUIRED IMMUNODEFICIENCY SYNDROME
     Dates: start: 20040313
  4. ANTI-TB MEDICATION [Concomitant]

REACTIONS (4)
  - GRANULOMATOUS LIVER DISEASE [None]
  - IMMUNE RECONSTITUTION SYNDROME [None]
  - MENINGITIS TUBERCULOUS [None]
  - PNEUMOCYSTIS JIROVECI PNEUMONIA [None]
